FAERS Safety Report 9349839 (Version 2)
Quarter: 2013Q2

REPORT INFORMATION
  Report Type: Report from Study
  Country: US (occurrence: US)
  Receive Date: 20130614
  Receipt Date: 20130628
  Transmission Date: 20140414
  Serious: Yes (Hospitalization)
  Sender: FDA-Public Use
  Company Number: US-ROCHE-1236772

PATIENT
  Age: 70 Year
  Sex: Female
  Weight: 79 kg

DRUGS (12)
  1. AVASTIN [Suspect]
     Indication: OVARIAN CANCER METASTATIC
     Route: 048
     Dates: start: 20121003, end: 20130130
  2. AVASTIN [Suspect]
     Dosage: EVERY 4 OR 6 WEEKS
     Route: 042
     Dates: start: 20121001, end: 20130410
  3. AVASTIN [Suspect]
     Route: 042
     Dates: start: 20130410, end: 20130522
  4. AVASTIN [Suspect]
     Route: 048
     Dates: start: 20130410, end: 20130522
  5. ATENOLOL [Concomitant]
     Indication: HYPERTENSION
     Dosage: 75/50 MG
     Route: 048
  6. LOSARTAN [Concomitant]
     Indication: HYPERTENSION
     Route: 048
  7. LASIX [Concomitant]
     Indication: HYPERTENSION
     Route: 048
  8. AMLODIPINE [Concomitant]
     Indication: HYPERTENSION
     Route: 048
  9. NORVASC [Concomitant]
     Indication: HYPERTENSION
     Route: 048
  10. CARBOPLATIN [Concomitant]
     Indication: OVARIAN CANCER
     Route: 042
     Dates: start: 20121003, end: 20130130
  11. TAXOTERE [Concomitant]
     Indication: OVARIAN CANCER
     Route: 042
     Dates: start: 20121003, end: 20130130
  12. PLAVIX [Concomitant]
     Indication: ANTICOAGULANT THERAPY
     Route: 048
     Dates: start: 20130531

REACTIONS (11)
  - Transient ischaemic attack [Recovered/Resolved]
  - Coronary artery occlusion [Not Recovered/Not Resolved]
  - Transient ischaemic attack [Recovered/Resolved]
  - Skin warm [Recovering/Resolving]
  - Hypoaesthesia [Recovering/Resolving]
  - Hypoaesthesia [Recovered/Resolved]
  - Nasal congestion [Unknown]
  - Epistaxis [Unknown]
  - Hypertension [Not Recovered/Not Resolved]
  - Chronic sinusitis [Not Recovered/Not Resolved]
  - Jaw disorder [Recovering/Resolving]
